FAERS Safety Report 8116341-0 (Version None)
Quarter: 2012Q1

REPORT INFORMATION
  Report Type: 
  Country: None (occurrence: None)
  Receive Date: 20120206
  Receipt Date: 20120203
  Transmission Date: 20120608
  Serious: Yes (Other)
  Sender: FDA-Public Use
  Company Number: US-GLAXOSMITHKLINE-A0964532A

PATIENT
  Age: 86 Year
  Sex: Male

DRUGS (2)
  1. SARNA ORIGINAL ANTI-ITCH LOTION [Suspect]
  2. EUCERIN [Concomitant]

REACTIONS (1)
  - MELANOCYTIC NAEVUS [None]
